FAERS Safety Report 7648252-9 (Version None)
Quarter: 2011Q3

REPORT INFORMATION
  Report Type: 
  Country: None (occurrence: None)
  Receive Date: 20110801
  Receipt Date: 20110721
  Transmission Date: 20111222
  Serious: Yes (Hospitalization)
  Sender: FDA-Public Use
  Company Number: CN-ASTRAZENECA-2011SE43705

PATIENT
  Age: 38 Year
  Sex: Female

DRUGS (1)
  1. LIDOCAINE [Suspect]

REACTIONS (3)
  - CARDIOMYOPATHY ACUTE [None]
  - ANAPHYLACTIC SHOCK [None]
  - ALVEOLITIS ALLERGIC [None]
